FAERS Safety Report 5678893-X (Version None)
Quarter: 2008Q1

REPORT INFORMATION
  Report Type: 
  Country: None (occurrence: None)
  Receive Date: 20080325
  Receipt Date: 20080317
  Transmission Date: 20080703
  Serious: Yes (Death, Other)
  Sender: FDA-Public Use
  Company Number: ES-AVENTIS-200812456GDDC

PATIENT
  Age: 81 Year
  Sex: Female

DRUGS (6)
  1. FLAGYL [Suspect]
     Indication: INFECTION PROPHYLAXIS
     Route: 042
     Dates: start: 20080129, end: 20080211
  2. ACETAMINOPHEN [Suspect]
     Route: 042
     Dates: start: 20080129, end: 20080211
  3. NOLOTIL                            /00473101/ [Suspect]
     Route: 042
     Dates: start: 20080129, end: 20080211
  4. TAZOCEL [Suspect]
     Indication: INFECTION PROPHYLAXIS
     Route: 042
     Dates: start: 20080124, end: 20080211
  5. CLEXANE [Concomitant]
     Dosage: DOSE: UNK
     Dates: start: 20080108, end: 20080123
  6. INSULIN [Concomitant]
     Indication: DIABETES MELLITUS
     Dosage: DOSE: UNK

REACTIONS (1)
  - PANCYTOPENIA [None]
